FAERS Safety Report 5447423-X (Version None)
Quarter: 2007Q4

REPORT INFORMATION
  Report Type: 
  Country: None (occurrence: None)
  Receive Date: 20070910
  Receipt Date: 20070829
  Transmission Date: 20080405
  Serious: Yes (Life-Threatening, Hospitalization)
  Sender: FDA-Public Use
  Company Number: HQWYE897429AUG07

PATIENT
  Age: 93 Year
  Sex: Female

DRUGS (7)
  1. INIPOMP [Suspect]
     Dosage: ^DF^ FREQUENCY UNKNOWN
     Route: 048
  2. STILNOX [Suspect]
     Dosage: ^DF^
     Route: 048
  3. STRONTIUM RANELATE [Suspect]
     Indication: OSTEOPOROSIS
     Dosage: ^DF^
     Route: 048
     Dates: start: 20061005
  4. SERC ^DUPHAR^ [Suspect]
     Dosage: ^DF^
     Route: 048
  5. CELECTOL [Suspect]
     Indication: CARDIAC FAILURE
     Dosage: ^DF^
     Route: 048
  6. KARDEGIC [Suspect]
     Dosage: 75 MG, FREQUENCY UNKNOWN
     Route: 048
  7. LASIX [Suspect]
     Dosage: ^DF^
     Route: 048

REACTIONS (4)
  - APHASIA [None]
  - BLOOD CALCIUM INCREASED [None]
  - DIABETIC HYPEROSMOLAR COMA [None]
  - TYPE 1 DIABETES MELLITUS [None]
